FAERS Safety Report 9232486 (Version 1)
Quarter: 2013Q2

REPORT INFORMATION
  Report Type: Spontaneous
  Country: US (occurrence: US)
  Receive Date: 20130416
  Receipt Date: 20130416
  Transmission Date: 20140414
  Serious: No
  Sender: FDA-Public Use
  Company Number: US-BIOGENIDEC-2013BI032585

PATIENT
  Age: 37 Year
  Sex: Female

DRUGS (1)
  1. TYSABRI [Suspect]
     Indication: MULTIPLE SCLEROSIS
     Route: 042
     Dates: start: 20121127

REACTIONS (4)
  - Feeling abnormal [Not Recovered/Not Resolved]
  - Pneumonitis [Recovered/Resolved]
  - Hypoaesthesia [Recovered/Resolved]
  - Lung infection [Not Recovered/Not Resolved]
